FAERS Safety Report 4707852-6 (Version None)
Quarter: 2005Q3

REPORT INFORMATION
  Report Type: 
  Country: None (occurrence: None)
  Receive Date: 20050701
  Receipt Date: 20050616
  Transmission Date: 20060218
  Serious: Yes (Hospitalization)
  Sender: FDA-Public Use
  Company Number: 9914485

PATIENT
  Age: 62 Year
  Sex: Male
  Weight: 91 kg

DRUGS (5)
  1. ATORVASTATIN CALCIUM [Suspect]
     Indication: HYPERLIPIDAEMIA
     Dosage: 10 MG (DAILY), ORAL
     Route: 048
     Dates: start: 19990204, end: 19990330
  2. ATENOLOL [Suspect]
     Indication: HYPERTENSION
     Dosage: 50 MG (50 MG, 1 IN 1 D), ORAL
     Route: 048
     Dates: start: 19990204
  3. MAGNYL (ACETYLSALICYLIC ACID, MAGNESIUM OXIDE) [Concomitant]
  4. LOCOIDOL (CHLORQUINALDOL, HYDROCORTISONE BUTYRATE) [Concomitant]
  5. LOSEC (OMEPRAZOLE) [Concomitant]

REACTIONS (4)
  - DIARRHOEA [None]
  - DYSPNOEA [None]
  - GASTRITIS [None]
  - MICROCYTIC ANAEMIA [None]
